FAERS Safety Report 11319323 (Version 1)
Quarter: 2015Q3

REPORT INFORMATION
  Report Type: Spontaneous
  Country: JP (occurrence: JP)
  Receive Date: 20150729
  Receipt Date: 20150729
  Transmission Date: 20151125
  Serious: Yes (Hospitalization, Other)
  Sender: FDA-Public Use
  Company Number: JP-ROCHE-1590932

PATIENT
  Age: 56 Year
  Sex: Female
  Weight: 42 kg

DRUGS (6)
  1. ACTONEL [Concomitant]
     Active Substance: RISEDRONATE SODIUM
     Indication: OSTEOPOROSIS
     Route: 048
  2. RINDERON V [Concomitant]
     Active Substance: BETAMETHASONE VALERATE
     Indication: RHEUMATOID VASCULITIS
     Route: 048
  3. DICLOFENAC [Concomitant]
     Active Substance: DICLOFENAC
     Indication: RHEUMATOID VASCULITIS
     Dosage: /DAY ..SINGLE USE.. ONE-TWICE AT PAIN
     Route: 054
  4. OPALMON [Concomitant]
     Active Substance: LIMAPROST
     Indication: PERIPHERAL VASCULAR DISORDER
     Route: 048
     Dates: start: 20111220
  5. ACTEMRA [Suspect]
     Active Substance: TOCILIZUMAB
     Indication: RHEUMATOID VASCULITIS
     Route: 041
     Dates: start: 20150422, end: 20150422
  6. CLINORIL [Concomitant]
     Active Substance: SULINDAC
     Indication: RHEUMATOID VASCULITIS
     Route: 048

REACTIONS (6)
  - Cytokine storm [Unknown]
  - Blister [Recovered/Resolved]
  - Peripheral swelling [Recovered/Resolved]
  - Herpes virus infection [Unknown]
  - Skin erosion [Recovered/Resolved]
  - Skin ulcer [Recovered/Resolved]

NARRATIVE: CASE EVENT DATE: 20150501
